FAERS Safety Report 17690644 (Version 2)
Quarter: 2020Q3

REPORT INFORMATION
  Report Type: Spontaneous
  Country: IT (occurrence: IT)
  Receive Date: 20200421
  Receipt Date: 20200714
  Transmission Date: 20201102
  Serious: Yes (Hospitalization, Other)
  Sender: FDA-Public Use
  Company Number: IT-AUROBINDO-AUR-APL-2020-019737

PATIENT
  Age: 13 Day
  Sex: Female

DRUGS (7)
  1. FLUCONAZOLE. [Suspect]
     Active Substance: FLUCONAZOLE
     Indication: FUNGAL INFECTION
  2. GENTAMICIN. [Suspect]
     Active Substance: GENTAMICIN
     Indication: ANTIBIOTIC THERAPY
     Dosage: UNK (ADMINISTERED VIA UMBILICAL VENOUS CATHETER)
     Route: 065
  3. AMPICILLIN [Suspect]
     Active Substance: AMPICILLIN
     Indication: ANTIBIOTIC THERAPY
     Dosage: UNK (ADMINISTERED VIA UMBILICAL VENOUS CATHETER)
     Route: 065
  4. FLUCONAZOLE. [Suspect]
     Active Substance: FLUCONAZOLE
     Indication: CANDIDA INFECTION
     Dosage: 6 MILLIGRAM/KILOGRAM, EVERY OTHER DAY
     Route: 065
  5. CASPOFUNGIN [Concomitant]
     Active Substance: CASPOFUNGIN
     Indication: CANDIDA INFECTION
     Dosage: 1 MILLIGRAM/KILOGRAM, ONCE A DAY
     Route: 065
  6. RANITIDINE. [Suspect]
     Active Substance: RANITIDINE
     Indication: PRODUCT USED FOR UNKNOWN INDICATION
     Dosage: UNK
     Route: 065
  7. AMPHOTERICINE B [Suspect]
     Active Substance: AMPHOTERICIN B
     Indication: CANDIDA INFECTION
     Dosage: 3 MILLIGRAM/KILOGRAM, ONCE A DAY (INITIAL DOSE UNKNOWN, LATER INCREASED TO 3 MG/KG/DAY)
     Route: 065

REACTIONS (5)
  - Sepsis [Recovered/Resolved]
  - Candida infection [Recovered/Resolved]
  - Intestinal obstruction [Unknown]
  - Drug ineffective [Unknown]
  - Liver abscess [Recovered/Resolved]
